FAERS Safety Report 5013416-X (Version None)
Quarter: 2006Q2

REPORT INFORMATION
  Report Type: 
  Country: None (occurrence: None)
  Receive Date: 20060530
  Receipt Date: 20060519
  Transmission Date: 20061013
  Serious: Yes (Other)
  Sender: FDA-Public Use
  Company Number: US-JNJFOC-20060504299

PATIENT

DRUGS (2)
  1. RAZADYNE [Suspect]
     Indication: DEMENTIA
     Route: 048
  2. RAZADYNE ER [Suspect]
     Indication: DEMENTIA
     Route: 048

REACTIONS (2)
  - DRUG DISPENSING ERROR [None]
  - MEDICATION ERROR [None]
